FAERS Safety Report 4698480-X (Version None)
Quarter: 2005Q2

REPORT INFORMATION
  Report Type: 
  Country: None (occurrence: None)
  Receive Date: 20050621
  Receipt Date: 20050608
  Transmission Date: 20051028
  Serious: Yes (Hospitalization, Other)
  Sender: FDA-Public Use
  Company Number: DE_050616112

PATIENT
  Age: 69 Year
  Sex: Male

DRUGS (3)
  1. ALIMTA [Suspect]
     Indication: METASTATIC BRONCHIAL CARCINOMA
     Dosage: 500 MG/M2
  2. FOLIC ACID [Concomitant]
  3. VITAMIN B-12 [Concomitant]

REACTIONS (15)
  - BLOOD CREATINE PHOSPHOKINASE INCREASED [None]
  - DIARRHOEA [None]
  - ELECTROLYTE IMBALANCE [None]
  - GASTROINTESTINAL OEDEMA [None]
  - GENERAL PHYSICAL HEALTH DETERIORATION [None]
  - GENERALISED ERYTHEMA [None]
  - INFLAMMATION [None]
  - MUCOSAL INFLAMMATION [None]
  - NASAL MUCOSAL DISORDER [None]
  - NAUSEA [None]
  - PANCYTOPENIA [None]
  - PHOTODERMATOSIS [None]
  - PYREXIA [None]
  - RHINITIS [None]
  - VOMITING [None]
